FAERS Safety Report 24418788 (Version 1)
Quarter: 2024Q4

REPORT INFORMATION
  Report Type: Spontaneous
  Country: US (occurrence: US)
  Receive Date: 20241009
  Receipt Date: 20241009
  Transmission Date: 20250115
  Serious: Yes (Other)
  Sender: AMGEN
  Company Number: US-AMGEN-USASP2024194023

PATIENT
  Age: 66 Year
  Sex: Female

DRUGS (2)
  1. RITUXIMAB [Suspect]
     Active Substance: RITUXIMAB
     Indication: Diffuse large B-cell lymphoma
     Dosage: UNK
     Route: 065
  2. TAFASITAMAB [Concomitant]
     Active Substance: TAFASITAMAB
     Indication: Diffuse large B-cell lymphoma
     Dosage: UNK
     Route: 065

REACTIONS (6)
  - Pulmonary nocardiosis [Unknown]
  - Staphylococcal infection [Unknown]
  - Vascular device infection [Unknown]
  - Leukopenia [Unknown]
  - Lymphopenia [Unknown]
  - Pneumonia [Unknown]
